FAERS Safety Report 19972748 (Version 1)
Quarter: 2021Q4

REPORT INFORMATION
  Report Type: Spontaneous
  Country: US (occurrence: US)
  Receive Date: 20211019
  Receipt Date: 20211019
  Transmission Date: 20220303
  Serious: Yes (Hospitalization)
  Sender: FDA-Public Use
  Company Number: None

PATIENT
  Age: 71 Year
  Sex: Female

DRUGS (1)
  1. ENBREL [Suspect]
     Active Substance: ETANERCEPT
     Indication: Rheumatoid arthritis
     Dosage: ?          OTHER FREQUENCY:QWEEK;
     Route: 058
     Dates: start: 20180308

REACTIONS (1)
  - Compression fracture [None]

NARRATIVE: CASE EVENT DATE: 20211019
